FAERS Safety Report 5205844-4 (Version None)
Quarter: 2007Q1

REPORT INFORMATION
  Report Type: 
  Country: None (occurrence: None)
  Receive Date: 20070111
  Receipt Date: 20070104
  Transmission Date: 20070707
  Serious: Yes (Hospitalization)
  Sender: FDA-Public Use
  Company Number: US-BRISTOL-MYERS SQUIBB COMPANY-13632450

PATIENT
  Age: 59 Year
  Sex: Male
  Weight: 82 kg

DRUGS (3)
  1. CETUXIMAB [Suspect]
     Indication: TONGUE NEOPLASM MALIGNANT STAGE UNSPECIFIED
     Dates: start: 20061226, end: 20061226
  2. CISPLATIN [Suspect]
     Indication: TONGUE NEOPLASM MALIGNANT STAGE UNSPECIFIED
     Dates: start: 20061226, end: 20061226
  3. RADIATION THERAPY [Suspect]
     Indication: TONGUE NEOPLASM MALIGNANT STAGE UNSPECIFIED
     Dates: start: 20061227, end: 20061227

REACTIONS (4)
  - DEHYDRATION [None]
  - MUSCULOSKELETAL CHEST PAIN [None]
  - NAUSEA [None]
  - VOMITING [None]
